FAERS Safety Report 6613202-0 (Version None)
Quarter: 2010Q1

REPORT INFORMATION
  Report Type: 
  Country: None (occurrence: None)
  Receive Date: 20100225
  Receipt Date: 20100211
  Transmission Date: 20100710
  Serious: Yes (Hospitalization)
  Sender: FDA-Public Use
  Company Number: MIN-00552

PATIENT
  Age: 63 Year
  Sex: Male

DRUGS (1)
  1. MINOCYCLINE HCL [Suspect]
     Indication: BRONCHOPULMONARY ASPERGILLOSIS

REACTIONS (6)
  - AORTIC ANEURYSM [None]
  - AORTIC VALVE DISEASE [None]
  - AORTIC VALVE INCOMPETENCE [None]
  - EXTERNAL EAR DISORDER [None]
  - OCHRONOSIS [None]
  - PIGMENTATION DISORDER [None]
